FAERS Safety Report 16717238 (Version 1)
Quarter: 2019Q3

REPORT INFORMATION
  Report Type: Spontaneous
  Country: JP (occurrence: JP)
  Receive Date: 20190819
  Receipt Date: 20190819
  Transmission Date: 20191005
  Serious: Yes (Other)
  Sender: FDA-Public Use
  Company Number: JP-JNJFOC-20190819845

PATIENT
  Age: 70 Year
  Sex: Male
  Weight: 80 kg

DRUGS (3)
  1. AMLODIPINE [Concomitant]
     Active Substance: AMLODIPINE BESYLATE
  2. CANDESARTAN. [Concomitant]
     Active Substance: CANDESARTAN
  3. XARELTO [Suspect]
     Active Substance: RIVAROXABAN
     Indication: ATRIAL FIBRILLATION
     Dosage: 15 MG, QD, DOSE REDUCED TO 10 MG FROM 03-AUG-2019
     Route: 048
     Dates: start: 20180701, end: 20190802

REACTIONS (3)
  - Gingival bleeding [Recovered/Resolved]
  - Renal impairment [Unknown]
  - Ileus [Unknown]

NARRATIVE: CASE EVENT DATE: 201903
